FAERS Safety Report 21592699 (Version 3)
Quarter: 2023Q1

REPORT INFORMATION
  Report Type: Spontaneous
  Country: JP (occurrence: JP)
  Receive Date: 20221114
  Receipt Date: 20230308
  Transmission Date: 20230418
  Serious: Yes (Death, Other)
  Sender: FDA-Public Use
  Company Number: JP-JAZZ-2022-JP-035016

PATIENT
  Age: 61 Year
  Sex: Female
  Weight: 37.9 kg

DRUGS (1)
  1. DEFITELIO [Suspect]
     Active Substance: DEFIBROTIDE SODIUM
     Indication: Venoocclusive liver disease
     Dosage: 25 MILLIGRAM/KILOGRAM/24 HOURS
     Route: 042
     Dates: start: 20220625, end: 20220715

REACTIONS (5)
  - Acute myeloid leukaemia [Fatal]
  - Cerebral haemorrhage [Fatal]
  - Toxic encephalopathy [Recovered/Resolved]
  - Metabolic encephalopathy [Recovered/Resolved]
  - Hypotension [Recovered/Resolved]

NARRATIVE: CASE EVENT DATE: 20220627
